FAERS Safety Report 5608508-8 (Version None)
Quarter: 2008Q1

REPORT INFORMATION
  Report Type: 
  Country: None (occurrence: None)
  Receive Date: 20080125
  Receipt Date: 20080115
  Transmission Date: 20080703
  Serious: Yes (Hospitalization)
  Sender: FDA-Public Use
  Company Number: 2007BI026311

PATIENT
  Age: 33 Year
  Sex: Male

DRUGS (1)
  1. TYSABRI [Suspect]
     Indication: MULTIPLE SCLEROSIS
     Dosage: 300 MG;IV
     Route: 042
     Dates: start: 20071120

REACTIONS (5)
  - ALCOHOL POISONING [None]
  - ASPIRATION [None]
  - BRONCHITIS [None]
  - COMA [None]
  - VOMITING [None]
